FAERS Safety Report 22064685 (Version 5)
Quarter: 2023Q2

REPORT INFORMATION
  Report Type: Report from Study
  Country: US (occurrence: US)
  Receive Date: 20230306
  Receipt Date: 20230424
  Transmission Date: 20230721
  Serious: Yes (Hospitalization)
  Sender: FDA-Public Use
  Company Number: US-JNJFOC-20230244245

PATIENT
  Age: 61 Year
  Sex: Male
  Weight: 88.6 kg

DRUGS (4)
  1. EPOPROSTENOL SODIUM [Suspect]
     Active Substance: EPOPROSTENOL SODIUM
     Indication: Pulmonary arterial hypertension
     Route: 042
  2. EPOPROSTENOL SODIUM [Suspect]
     Active Substance: EPOPROSTENOL SODIUM
     Dosage: VELETRI 1.5MG VIAL INTRAVENOUS CONTINUOUS
     Route: 042
  3. OPSUMIT [Concomitant]
     Active Substance: MACITENTAN
  4. ADEMPAS [Concomitant]
     Active Substance: RIOCIGUAT

REACTIONS (5)
  - Vascular device occlusion [Unknown]
  - Vascular device infection [Not Recovered/Not Resolved]
  - Hospitalisation [Unknown]
  - Catheter site infection [Unknown]
  - Underdose [Unknown]

NARRATIVE: CASE EVENT DATE: 20230228
